FAERS Safety Report 4590365-2 (Version None)
Quarter: 2005Q1

REPORT INFORMATION
  Report Type: 
  Country: None (occurrence: None)
  Receive Date: 20050224
  Receipt Date: 20041126
  Transmission Date: 20050727
  Serious: Yes (Hospitalization, Disabling)
  Sender: FDA-Public Use
  Company Number: GB-MERCK-0411GBR00261

PATIENT
  Age: 65 Year
  Sex: Female

DRUGS (9)
  1. ZOCOR [Suspect]
     Indication: HYPERCHOLESTEROLAEMIA
     Route: 048
     Dates: start: 19920101, end: 20040101
  2. ZOCOR [Suspect]
     Route: 048
     Dates: start: 20040101
  3. ZOCOR [Suspect]
     Route: 048
     Dates: start: 20040101, end: 20040101
  4. LISINOPRIL [Concomitant]
     Route: 065
  5. PIOGLITAZONE HYDROCHLORIDE [Concomitant]
     Route: 065
  6. GLICLAZIDE [Concomitant]
     Route: 065
  7. ASPIRIN [Concomitant]
     Route: 065
  8. ZETIA [Concomitant]
     Route: 048
  9. GASTROINTESTINAL PREPARATIONS (UNSPECIFIED) [Concomitant]
     Route: 065

REACTIONS (8)
  - DIABETIC NEUROPATHY [None]
  - DIFFICULTY IN WALKING [None]
  - INTERMITTENT CLAUDICATION [None]
  - LUMBAR RADICULOPATHY [None]
  - LUMBAR SPINAL STENOSIS [None]
  - MYOPATHY [None]
  - ROAD TRAFFIC ACCIDENT [None]
  - SCIATICA [None]
